FAERS Safety Report 11127359 (Version 1)
Quarter: 2015Q2

REPORT INFORMATION
  Report Type: Spontaneous
  Country: CA (occurrence: None)
  Receive Date: 20150519
  Receipt Date: 20150519
  Transmission Date: 20150821
  Serious: Yes (Hospitalization, Other)
  Sender: FDA-Public Use
  Company Number: CA-2014VAL000550

PATIENT
  Age: 42 Year
  Sex: Male
  Weight: 78.5 kg

DRUGS (4)
  1. CALCIUM CARBONATE. [Suspect]
     Active Substance: CALCIUM CARBONATE
     Indication: PSEUDOHYPOPARATHYROIDISM
  2. CALCIUM CARBONATE. [Suspect]
     Active Substance: CALCIUM CARBONATE
     Indication: ALBRIGHT^S DISEASE
  3. CALCITRIOL (CALCITRIOL) [Suspect]
     Active Substance: CALCITRIOL
     Indication: ALBRIGHT^S DISEASE
  4. CALCITRIOL (CALCITRIOL) [Suspect]
     Active Substance: CALCITRIOL
     Indication: PSEUDOHYPOPARATHYROIDISM

REACTIONS (5)
  - Arteriosclerosis coronary artery [None]
  - Bone decalcification [None]
  - Articular calcification [None]
  - Calcinosis [None]
  - Myocardial infarction [None]
